FAERS Safety Report 18644450 (Version 2)
Quarter: 2021Q1

REPORT INFORMATION
  Report Type: Spontaneous
  Country: MA (occurrence: MA)
  Receive Date: 20201221
  Receipt Date: 20210101
  Transmission Date: 20210419
  Serious: Yes (Other)
  Sender: FDA-Public Use
  Company Number: NVSC2020MA335505

PATIENT
  Age: 38 Year
  Sex: Female

DRUGS (1)
  1. KISQALI [Suspect]
     Active Substance: RIBOCICLIB
     Indication: BREAST CANCER
     Dosage: 300 MG, TID
     Route: 048
     Dates: start: 202007

REACTIONS (2)
  - Pericardial effusion [Unknown]
  - Incorrect dose administered [Unknown]
